FAERS Safety Report 9742472 (Version 1)
Quarter: 2013Q4

REPORT INFORMATION
  Report Type: Report from Study
  Country: JP (occurrence: JP)
  Receive Date: 20131210
  Receipt Date: 20131210
  Transmission Date: 20140711
  Serious: Yes (Other)
  Sender: FDA-Public Use
  Company Number: JP-UCBSA-105098

PATIENT
  Age: 12 Year
  Sex: Female

DRUGS (5)
  1. LEVETIRACETAM [Suspect]
  2. VPA [Concomitant]
  3. NITRAZEPAM [Concomitant]
  4. ACTH [Concomitant]
  5. ACTH [Concomitant]
     Dosage: LOW DOSE OF ACTH THERAPY

REACTIONS (1)
  - Partial seizures [Unknown]
